FAERS Safety Report 7665720-4 (Version None)
Quarter: 2011Q3

REPORT INFORMATION
  Report Type: 
  Country: None (occurrence: None)
  Receive Date: 20110806
  Receipt Date: 20110414
  Transmission Date: 20111222
  Serious: No
  Sender: FDA-Public Use
  Company Number: US-ABBOTT-11P-163-0719609-00

PATIENT
  Sex: Male
  Weight: 56.75 kg

DRUGS (11)
  1. LIPITOR [Concomitant]
     Indication: PRODUCT USED FOR UNKNOWN INDICATION
  2. NIASPAN [Suspect]
     Indication: PRODUCT USED FOR UNKNOWN INDICATION
  3. SIMCOR [Suspect]
     Indication: ARTERIAL OCCLUSIVE DISEASE
     Dosage: 1000/20MG
  4. SIMCOR [Suspect]
     Dosage: 500/20MG
     Dates: end: 20090101
  5. LISINOPRIL [Concomitant]
     Indication: BLADDER DISORDER
  6. SIMCOR [Suspect]
     Dosage: 750/20MG
  7. NIASPAN [Suspect]
  8. M.V.I. [Concomitant]
     Indication: PRODUCT USED FOR UNKNOWN INDICATION
  9. DOXYCYCLINE [Concomitant]
     Indication: ACNE
  10. LISINOPRIL [Concomitant]
     Indication: RENAL DISORDER
  11. ASPIRIN [Concomitant]
     Indication: PRODUCT USED FOR UNKNOWN INDICATION

REACTIONS (2)
  - RASH [None]
  - GASTROOESOPHAGEAL REFLUX DISEASE [None]
